FAERS Safety Report 25534324 (Version 1)
Quarter: 2025Q3

REPORT INFORMATION
  Report Type: Spontaneous
  Country: US (occurrence: None)
  Receive Date: 20250708
  Receipt Date: 20250708
  Transmission Date: 20251020
  Serious: Yes (Other)
  Sender: FDA-CTU
  Company Number: None

PATIENT
  Sex: Male

DRUGS (11)
  1. TEZSPIRE [Suspect]
     Active Substance: TEZEPELUMAB-EKKO
     Indication: Asthma
     Dosage: INJECT 1 SYRINGE (210MG) UNDER THE SKIN (SUBCUTANEOUS INJECTION) EVERY FOUR WEEKS TO BE ADMINISTERED IN?PRESCRIBERS OFFICE
     Route: 058
  2. ALBUTEROL AER HFA [Concomitant]
  3. ALLERGY RELITAB 10MG [Concomitant]
  4. CETIRIZINE HCL [Concomitant]
     Active Substance: CETIRIZINE HYDROCHLORIDE
  5. EPINEPHRINE INJ 0.3MG [Concomitant]
  6. FAMOTIDINE [Concomitant]
     Active Substance: FAMOTIDINE
  7. FLUTICASONE [Concomitant]
     Active Substance: FLUTICASONE
  8. GABAPENTIN CAP 100MG [Concomitant]
  9. LAMOTRIGINE [Concomitant]
     Active Substance: LAMOTRIGINE
  10. LISINOPRIL [Concomitant]
     Active Substance: LISINOPRIL
  11. METHOCARBAM TAB 750MG [Concomitant]

REACTIONS (3)
  - Condition aggravated [None]
  - Asthma [None]
  - Back pain [None]
